FAERS Safety Report 19894783 (Version 2)
Quarter: 2022Q3

REPORT INFORMATION
  Report Type: Spontaneous
  Country: US (occurrence: US)
  Receive Date: 20210929
  Receipt Date: 20220708
  Transmission Date: 20221027
  Serious: Yes (Other)
  Sender: FDA-Public Use
  Company Number: US-CELLTRION INC.-2021US008639

PATIENT

DRUGS (2)
  1. INFLECTRA [Suspect]
     Active Substance: INFLIXIMAB-DYYB
     Indication: Behcet^s syndrome
     Dosage: WAS GIVEN INFUSION ON APRIL 1
     Route: 065
  2. INFLECTRA [Suspect]
     Active Substance: INFLIXIMAB-DYYB
     Indication: Rheumatoid arthritis
     Dosage: 200 MILLIGRAM, 0, 2, 6 WEEKS THEN EVERY 8 WEEKS AFTER

REACTIONS (10)
  - Behcet^s syndrome [Unknown]
  - Arthropathy [Unknown]
  - Mucosal ulceration [Unknown]
  - Tenderness [Unknown]
  - Feeling abnormal [Unknown]
  - Unevaluable event [Unknown]
  - Mouth ulceration [Unknown]
  - Vasculitis [Unknown]
  - Pain [Unknown]
  - Off label use [Unknown]
